FAERS Safety Report 19071455 (Version 1)
Quarter: 2021Q1

REPORT INFORMATION
  Report Type: Spontaneous
  Country: NL (occurrence: NL)
  Receive Date: 20210330
  Receipt Date: 20210330
  Transmission Date: 20210420
  Serious: Yes (Other)
  Sender: FDA-Public Use
  Company Number: NL-TEVA-2021-NL-1894577

PATIENT
  Sex: Female
  Weight: 84 kg

DRUGS (2)
  1. METHOTREXAAT TABLET  2,5MG / BRAND NAME NOT SPECIFIED [Suspect]
     Active Substance: METHOTREXATE SODIUM
     Dosage: UNIT DOSE :4 DOSAGE FORMS ,1X PER WEEK ,THERAPY END DATE :NOT ASKED
     Dates: start: 202011
  2. METHOTREXAAT TABLET  2,5MG / BRAND NAME NOT SPECIFIED [Suspect]
     Active Substance: METHOTREXATE SODIUM
     Indication: DERMATITIS ATOPIC
     Dosage: UNIT DOSE :6 DOSAGE FORMS ,1X PER WEEK 6 TABLETS, THERAPY START DATE: NOT ASKED  ,THERAPY START DATE

REACTIONS (1)
  - Arrhythmia [Recovered/Resolved]
